FAERS Safety Report 10861893 (Version 1)
Quarter: 2015Q1

REPORT INFORMATION
  Report Type: Spontaneous
  Country: ZA (occurrence: ZA)
  Receive Date: 20150224
  Receipt Date: 20150224
  Transmission Date: 20150721
  Serious: Yes (Other)
  Sender: FDA-Public Use
  Company Number: ZA-009507513-1502ZAF008315

PATIENT

DRUGS (1)
  1. SIMVASTATIN. [Suspect]
     Active Substance: SIMVASTATIN
     Dosage: UNK

REACTIONS (6)
  - Memory impairment [Unknown]
  - Myalgia [Unknown]
  - Cataract [Unknown]
  - Asthenia [Unknown]
  - Parkinson^s disease [Unknown]
  - Rickets [Unknown]
